FAERS Safety Report 7772058-3 (Version None)
Quarter: 2011Q3

REPORT INFORMATION
  Report Type: 
  Country: None (occurrence: None)
  Receive Date: 20110922
  Receipt Date: 20110720
  Transmission Date: 20111222
  Serious: Yes (Other)
  Sender: FDA-Public Use
  Company Number: US-ASTRAZENECA-2008UW12178

PATIENT
  Age: 31 Year
  Sex: Female
  Weight: 106.1 kg

DRUGS (19)
  1. PROTONIX [Concomitant]
     Dates: start: 20040429
  2. VALPROIC ACID [Concomitant]
     Dosage: 250 MG 8 CAPSULE AT BEDTIME
     Route: 048
     Dates: start: 20051201
  3. LEVOTHYROXINE SODIUM [Concomitant]
     Route: 048
     Dates: start: 20060101
  4. DEPAKOTE [Concomitant]
     Route: 048
     Dates: start: 20050922
  5. RISPERDAL [Concomitant]
     Dosage: 15 MG AS REQUIRED
     Dates: start: 20080701
  6. LEXAPRO [Concomitant]
     Dates: start: 20060101, end: 20070101
  7. TRAZODONE HCL [Concomitant]
     Dates: start: 20040219
  8. ABILIFY [Concomitant]
     Dates: start: 20070101, end: 20080101
  9. TRAZODONE HCL [Concomitant]
     Dates: start: 20040205
  10. SEROQUEL [Suspect]
     Route: 048
     Dates: start: 20040401
  11. SEROQUEL [Suspect]
     Dosage: 200 TO 300 MG
     Route: 048
     Dates: start: 20050901, end: 20070301
  12. SEROQUEL [Suspect]
     Route: 048
     Dates: start: 20050922
  13. GEODON [Concomitant]
     Dates: start: 20050101
  14. GEODON [Concomitant]
     Route: 048
     Dates: start: 20050922
  15. LEXAPRO [Concomitant]
     Dates: start: 20040108
  16. LEXAPRO [Concomitant]
     Route: 048
     Dates: start: 20060101
  17. SEROQUEL [Suspect]
     Indication: BIPOLAR DISORDER
     Route: 048
     Dates: start: 20040318
  18. LORATADINE [Concomitant]
     Dates: start: 20040417
  19. ZANTAC [Concomitant]
     Route: 048

REACTIONS (6)
  - OBESITY [None]
  - BLOOD CHOLESTEROL INCREASED [None]
  - HYPOTHYROIDISM [None]
  - THYROID DISORDER [None]
  - SUICIDE ATTEMPT [None]
  - DIABETES MELLITUS [None]
